FAERS Safety Report 4933445-1 (Version None)
Quarter: 2006Q1

REPORT INFORMATION
  Report Type: 
  Country: None (occurrence: None)
  Receive Date: 20060306
  Receipt Date: 20060227
  Transmission Date: 20060701
  Serious: Yes (Hospitalization)
  Sender: FDA-Public Use
  Company Number: CN-GLAXOSMITHKLINE-B0414256A

PATIENT
  Age: 9 Year
  Sex: Male
  Weight: 25 kg

DRUGS (1)
  1. LAMIVUDINE [Suspect]
     Dosage: .1G PER DAY
     Route: 065

REACTIONS (5)
  - APNOEA [None]
  - EXTRAPYRAMIDAL DISORDER [None]
  - OVERDOSE [None]
  - STRABISMUS [None]
  - TORTICOLLIS [None]
